FAERS Safety Report 16747311 (Version 1)
Quarter: 2019Q3

REPORT INFORMATION
  Report Type: Spontaneous
  Country: DE (occurrence: DE)
  Receive Date: 20190827
  Receipt Date: 20190827
  Transmission Date: 20191005
  Serious: Yes (Life-Threatening)
  Sender: FDA-Public Use
  Company Number: DE-INDIVIOR EUROPE LIMITED-INDV-121255-2019

PATIENT

DRUGS (1)
  1. SUBUTEX [Suspect]
     Active Substance: BUPRENORPHINE HYDROCHLORIDE
     Indication: DRUG DEPENDENCE
     Dosage: 18MG, UNK
     Route: 065

REACTIONS (1)
  - Chronic obstructive pulmonary disease [Not Recovered/Not Resolved]
